FAERS Safety Report 23169393 (Version 10)
Quarter: 2024Q4

REPORT INFORMATION
  Report Type: Report from Study
  Country: CO (occurrence: CO)
  Receive Date: 20231110
  Receipt Date: 20241122
  Transmission Date: 20250114
  Serious: Yes (Hospitalization, Other)
  Sender: TAKEDA
  Company Number: CO-TAKEDA-2023TUS103464

PATIENT
  Age: 19 Year
  Sex: Female
  Weight: 55 kg

DRUGS (3)
  1. VEDOLIZUMAB [Suspect]
     Active Substance: VEDOLIZUMAB
     Indication: Crohn^s disease
     Dosage: 300 MILLIGRAM
  2. VEDOLIZUMAB [Suspect]
     Active Substance: VEDOLIZUMAB
     Dosage: 300 MILLIGRAM, Q4WEEKS
     Dates: start: 20240221
  3. INFLIXIMAB [Concomitant]
     Active Substance: INFLIXIMAB
     Dosage: 275 MILLIGRAM, Q8WEEKS

REACTIONS (19)
  - Crohn^s disease [Unknown]
  - Rectal abscess [Unknown]
  - Anal fistula [Recovering/Resolving]
  - Rectal haemorrhage [Recovering/Resolving]
  - Anal abscess [Recovered/Resolved]
  - Abdominal distension [Unknown]
  - Constipation [Unknown]
  - Proctalgia [Recovering/Resolving]
  - Drug ineffective [Unknown]
  - Inflammation [Recovering/Resolving]
  - Frequent bowel movements [Recovering/Resolving]
  - Weight decreased [Unknown]
  - Anxiety [Unknown]
  - Depression [Unknown]
  - Discouragement [Unknown]
  - Pharyngeal inflammation [Unknown]
  - Stomatitis [Unknown]
  - Genital ulceration [Unknown]
  - Abdominal pain [Recovering/Resolving]

NARRATIVE: CASE EVENT DATE: 20230822
